FAERS Safety Report 25149390 (Version 1)
Quarter: 2025Q2

REPORT INFORMATION
  Report Type: Spontaneous
  Country: GB (occurrence: GB)
  Receive Date: 20250402
  Receipt Date: 20250402
  Transmission Date: 20250716
  Serious: Yes (Hospitalization)
  Sender: MYLAN
  Company Number: GB-MYLANLABS-2025M1021471

PATIENT
  Sex: Male

DRUGS (2)
  1. CLOZARIL [Suspect]
     Active Substance: CLOZAPINE
     Indication: Schizophrenia
     Dates: start: 20140812, end: 20250304
  2. CLOZARIL [Suspect]
     Active Substance: CLOZAPINE
     Dates: start: 20250325, end: 20250325

REACTIONS (4)
  - Hospitalisation [Unknown]
  - Fasting [Unknown]
  - Therapy interrupted [Unknown]
  - Treatment noncompliance [Unknown]
